FAERS Safety Report 17998906 (Version 1)
Quarter: 2020Q3

REPORT INFORMATION
  Report Type: Spontaneous
  Country: US (occurrence: US)
  Receive Date: 20200708
  Receipt Date: 20200708
  Transmission Date: 20201103
  Serious: No
  Sender: FDA-Public Use
  Company Number: None

PATIENT
  Age: 79 Year
  Sex: Female

DRUGS (1)
  1. CLONIDINE. [Suspect]
     Active Substance: CLONIDINE
     Route: 048
     Dates: start: 20190515, end: 20190619

REACTIONS (4)
  - Dizziness [None]
  - Treatment noncompliance [None]
  - Blood pressure decreased [None]
  - Urinary retention [None]

NARRATIVE: CASE EVENT DATE: 20190515
